FAERS Safety Report 13400047 (Version 1)
Quarter: 2017Q2

REPORT INFORMATION
  Report Type: Spontaneous
  Country: CN (occurrence: CN)
  Receive Date: 20170404
  Receipt Date: 20170404
  Transmission Date: 20170830
  Serious: Yes (Death, Hospitalization, Other)
  Sender: FDA-Public Use
  Company Number: CN-ASTRAZENECA-2017SE33781

PATIENT
  Age: 26051 Day
  Sex: Male
  Weight: 50 kg

DRUGS (6)
  1. HEPARIN SODIUM. [Suspect]
     Active Substance: HEPARIN SODIUM
     Indication: COAGULOPATHY
     Dosage: 3000.0IU ONCE/SINGLE ADMINISTRATION
     Route: 042
     Dates: start: 20161027, end: 20161027
  2. TICAGRELOR [Suspect]
     Active Substance: TICAGRELOR
     Indication: COAGULOPATHY
     Route: 048
     Dates: start: 20161027, end: 20161027
  3. HEPARIN SODIUM. [Suspect]
     Active Substance: HEPARIN SODIUM
     Indication: COAGULOPATHY
     Dosage: 5000.0IU ONCE/SINGLE ADMINISTRATION
     Route: 042
     Dates: start: 20161027, end: 20161027
  4. TIROFIBAN HYDROCHLORIDE. [Suspect]
     Active Substance: TIROFIBAN HYDROCHLORIDE
     Indication: PLATELET AGGREGATION INHIBITION
     Dosage: (5 MG/100 ML) 3D/MIN, 5 MG DAILY
     Route: 041
     Dates: start: 20161027, end: 20161027
  5. HEPARIN SODIUM. [Suspect]
     Active Substance: HEPARIN SODIUM
     Indication: COAGULOPATHY
     Dosage: 25000.0IU ONCE/SINGLE ADMINISTRATION
     Route: 042
     Dates: start: 20161027, end: 20161027
  6. ASPIRIN. [Concomitant]
     Active Substance: ASPIRIN
     Indication: PLATELET AGGREGATION INHIBITION
     Route: 048
     Dates: start: 20161024, end: 20161027

REACTIONS (3)
  - Brain herniation [Not Recovered/Not Resolved]
  - Death [Fatal]
  - Basal ganglia haemorrhage [Not Recovered/Not Resolved]

NARRATIVE: CASE EVENT DATE: 20161127
